FAERS Safety Report 8803126 (Version 1)
Quarter: 2012Q4

REPORT INFORMATION
  Report Type: Report from Study
  Country: JP (occurrence: JP)
  Receive Date: 20120924
  Receipt Date: 20120924
  Transmission Date: 20130627
  Serious: No
  Sender: FDA-Public Use
  Company Number: JP-JNJFOC-20120609304

PATIENT
  Age: 70 Year
  Sex: Female
  Weight: 67.13 kg

DRUGS (4)
  1. DUROTEP MT [Suspect]
     Indication: PAIN
     Route: 062
     Dates: start: 20110809, end: 20110906
  2. MORPHINE HYDROCHLORIDE [Suspect]
     Indication: PAIN
     Route: 065
     Dates: start: 20110803
  3. MYONAL [Concomitant]
     Indication: PAIN
     Route: 048
  4. MYONAL [Concomitant]
     Indication: PAIN
     Route: 048

REACTIONS (4)
  - Urinary incontinence [Recovered/Resolved]
  - Muscular weakness [Recovered/Resolved]
  - Drug intolerance [Unknown]
  - Drug prescribing error [Unknown]
